FAERS Safety Report 6959941-3 (Version None)
Quarter: 2010Q3

REPORT INFORMATION
  Report Type: 
  Country: None (occurrence: None)
  Receive Date: 20100901
  Receipt Date: 20100820
  Transmission Date: 20110219
  Serious: Yes (Other)
  Sender: FDA-Public Use
  Company Number: US-CELGENEUS-163-21880-10080691

PATIENT
  Sex: Female

DRUGS (22)
  1. REVLIMID [Suspect]
     Indication: MULTIPLE MYELOMA
     Route: 048
     Dates: start: 20100601
  2. DEXAMETHASONE [Concomitant]
     Indication: PRODUCT USED FOR UNKNOWN INDICATION
     Route: 065
  3. DEXAMETHASONE [Concomitant]
     Route: 048
  4. DEXAMETHASONE [Concomitant]
  5. ASPIRIN [Concomitant]
     Indication: PRODUCT USED FOR UNKNOWN INDICATION
     Route: 048
  6. ASPIRIN [Concomitant]
  7. ASPIRIN [Concomitant]
  8. PRILOSEC [Concomitant]
     Indication: PRODUCT USED FOR UNKNOWN INDICATION
     Route: 065
  9. PRILOSEC [Concomitant]
  10. PRILOSEC [Concomitant]
  11. HYDROCHLOROTHIAZIDE [Concomitant]
     Indication: PRODUCT USED FOR UNKNOWN INDICATION
     Route: 048
  12. HYDROCHLOROTHIAZIDE [Concomitant]
  13. HYDROCHLOROTHIAZIDE [Concomitant]
  14. VITAMIN E [Concomitant]
     Indication: PRODUCT USED FOR UNKNOWN INDICATION
     Dosage: 200 UNIT
     Route: 048
  15. VITAMIN E [Concomitant]
  16. VITAMIN E [Concomitant]
  17. VITAMIN D [Concomitant]
     Indication: PRODUCT USED FOR UNKNOWN INDICATION
     Dosage: 400 UNIT
     Route: 048
  18. VITAMIN D [Concomitant]
  19. VITAMIN D [Concomitant]
  20. MULTI-VITAMINS [Concomitant]
     Indication: PRODUCT USED FOR UNKNOWN INDICATION
     Dosage: 400 UNIT
     Route: 048
  21. MULTI-VITAMINS [Concomitant]
  22. MULTI-VITAMINS [Concomitant]

REACTIONS (3)
  - CHOLELITHIASIS [None]
  - DYSGEUSIA [None]
  - GASTROINTESTINAL DISORDER [None]
